FAERS Safety Report 5611990-3 (Version None)
Quarter: 2008Q1

REPORT INFORMATION
  Report Type: 
  Country: None (occurrence: None)
  Receive Date: 20080204
  Receipt Date: 20080128
  Transmission Date: 20080703
  Serious: Yes (Other)
  Sender: FDA-Public Use
  Company Number: FR-AVENTIS-200810392FR

PATIENT
  Sex: Female

DRUGS (1)
  1. LOVENOX [Suspect]

REACTIONS (2)
  - ACCIDENTAL NEEDLE STICK [None]
  - PHARMACEUTICAL PRODUCT COMPLAINT [None]
